FAERS Safety Report 23613079 (Version 1)
Quarter: 2024Q1

REPORT INFORMATION
  Report Type: Report from Study
  Country: US (occurrence: US)
  Receive Date: 20240308
  Receipt Date: 20240308
  Transmission Date: 20240410
  Serious: Yes (Other)
  Sender: FDA-Public Use
  Company Number: US-JAZZ PHARMACEUTICALS-2022-US-037789

PATIENT
  Age: 51 Year
  Sex: Female

DRUGS (23)
  1. XYWAV [Suspect]
     Active Substance: CALCIUM OXYBATE\MAGNESIUM OXYBATE\POTASSIUM OXYBATE\SODIUM OXYBATE
     Indication: Narcolepsy
     Dosage: 4.5 GRAM, BID
  2. XYWAV [Suspect]
     Active Substance: CALCIUM OXYBATE\MAGNESIUM OXYBATE\POTASSIUM OXYBATE\SODIUM OXYBATE
     Indication: Cataplexy
  3. XYWAV [Suspect]
     Active Substance: CALCIUM OXYBATE\MAGNESIUM OXYBATE\POTASSIUM OXYBATE\SODIUM OXYBATE
     Indication: Somnolence
  4. PENICILLIN [Suspect]
     Active Substance: PENICILLIN
     Indication: Product used for unknown indication
  5. TIZANIDINE [Suspect]
     Active Substance: TIZANIDINE
     Indication: Product used for unknown indication
  6. VICODIN [Suspect]
     Active Substance: ACETAMINOPHEN\HYDROCODONE BITARTRATE
     Indication: Product used for unknown indication
  7. DDAVP [Concomitant]
     Active Substance: DESMOPRESSIN ACETATE
     Dosage: 0.1 MILLIGRAM, TID(3 TIMES DAILY)
     Route: 048
     Dates: start: 20190601
  8. DDAVP [Concomitant]
     Active Substance: DESMOPRESSIN ACETATE
     Dosage: 0.1 MILLIGRAM, TID(3 TIMES DAILY)
     Route: 048
     Dates: start: 20190601
  9. ESTROGEN NOS;MEDROXYPROGESTERONE [Concomitant]
     Indication: Product used for unknown indication
     Dosage: UNK
     Dates: start: 20210423
  10. LYRICA [Concomitant]
     Active Substance: PREGABALIN
     Indication: Product used for unknown indication
     Dosage: TAKE 4 CAPUSLES  TWICE DAILY FOR 30 DAYS
     Route: 048
     Dates: start: 20221118
  11. VYVANSE [Concomitant]
     Active Substance: LISDEXAMFETAMINE DIMESYLATE
     Dosage: TAKE 1 CAPSULE BY MOUTH ONCE DAILY FOR 30 DAYS
     Dates: start: 20230312
  12. TEGRETOL [Concomitant]
     Active Substance: CARBAMAZEPINE
     Dosage: TAKE 1 TABLET BY MOUTH TWICE DAILY
     Route: 048
  13. TEGRETOL [Concomitant]
     Active Substance: CARBAMAZEPINE
     Dosage: TAKE 1 TABLET BY MOUTH TWICE DAILY
     Route: 048
  14. ESTRATEST [Concomitant]
     Active Substance: ESTROGENS, ESTERIFIED\METHYLTESTOSTERONE
     Dosage: TAKE 1 TABLET BY MOUTH ONCED AILY
     Route: 048
  15. ESTRATEST [Concomitant]
     Active Substance: ESTROGENS, ESTERIFIED\METHYLTESTOSTERONE
     Dosage: TAKE 1 TABLET BY MOUTH ONCED AILY
     Route: 048
  16. EZETIMIBE [Concomitant]
     Active Substance: EZETIMIBE
     Dosage: 10 MILLIGRAM, QD (EVERY MORNING)
     Route: 048
  17. ATARAX [Concomitant]
     Active Substance: HYDROXYZINE HYDROCHLORIDE
     Dosage: 25 MILLIGRAM, PRN (AS NEEDEDE)
     Route: 048
  18. SYNTHROID [Concomitant]
     Active Substance: LEVOTHYROXINE SODIUM
     Dosage: 50 MICROGRAM, QD(EVERY MORNING
     Route: 048
  19. CYTOMEL [Concomitant]
     Active Substance: LIOTHYRONINE SODIUM
     Dosage: 5 MICROGRAM, BID
     Route: 048
  20. PRILOSEC [Concomitant]
     Active Substance: OMEPRAZOLE MAGNESIUM
     Dosage: 40 MILLIGRAM, PRN
     Route: 048
  21. REPATHA [Concomitant]
     Active Substance: EVOLOCUMAB
     Dosage: 140 MILLIGRAM UNDER SKIN EVERY 2 WEEKS
  22. REPATHA [Concomitant]
     Active Substance: EVOLOCUMAB
     Dosage: 140 MILLIGRAM UNDER SKIN EVERY 2 WEEKS
  23. IMITREX [Concomitant]
     Active Substance: SUMATRIPTAN SUCCINATE
     Dosage: 100 MILLIGRAM, QD
     Route: 048

REACTIONS (6)
  - Diverticulitis [Unknown]
  - Urticaria [Unknown]
  - Somnolence [Unknown]
  - Migraine [Unknown]
  - Trigeminal neuralgia [Unknown]
  - Condition aggravated [Unknown]

NARRATIVE: CASE EVENT DATE: 20230801
